FAERS Safety Report 18007590 (Version 1)
Quarter: 2020Q3

REPORT INFORMATION
  Report Type: Report from Study
  Country: BE (occurrence: BE)
  Receive Date: 20200710
  Receipt Date: 20200710
  Transmission Date: 20201103
  Serious: Yes (Hospitalization, Disabling, Other)
  Sender: FDA-Public Use
  Company Number: BE-PFIZER INC-2020253471

PATIENT
  Age: 67 Year
  Sex: Female
  Weight: 76 kg

DRUGS (3)
  1. CALCIUM CARBONATE. [Concomitant]
     Active Substance: CALCIUM CARBONATE
     Dosage: 1 G, 1X/DAY
  2. LORLATINIB [Suspect]
     Active Substance: LORLATINIB
     Dosage: 75 MG, 1X/DAY (3 TABLETS 25 MG)
  3. LORLATINIB [Suspect]
     Active Substance: LORLATINIB
     Indication: NON-SMALL CELL LUNG CANCER
     Dosage: 100 MG, 1X/DAY (4 TABLETS 25 MG)

REACTIONS (15)
  - Peripheral sensory neuropathy [Unknown]
  - Myalgia [Unknown]
  - Hallucination [Recovering/Resolving]
  - Amnesia [Unknown]
  - Gait disturbance [Unknown]
  - Peripheral motor neuropathy [Unknown]
  - Anxiety [Unknown]
  - Dysarthria [Unknown]
  - Ataxia [Unknown]
  - Arthralgia [Unknown]
  - Inflammation [Unknown]
  - Fall [Unknown]
  - Urinary tract infection bacterial [Unknown]
  - Back pain [Unknown]
  - Confusional state [Unknown]

NARRATIVE: CASE EVENT DATE: 20200618
